FAERS Safety Report 21465949 (Version 1)
Quarter: 2022Q4

REPORT INFORMATION
  Report Type: Spontaneous
  Country: US (occurrence: None)
  Receive Date: 20221016
  Receipt Date: 20221016
  Transmission Date: 20230113
  Serious: Yes (Other)
  Sender: FDA-Public Use
  Company Number: None

PATIENT
  Age: 23 Year
  Sex: Male
  Weight: 82.35 kg

DRUGS (4)
  1. DEXTROAMPHET SACCHARAT, AMPHET ASPARTATE, DEXTROAMPHET SULFATE AND AMP [Suspect]
     Active Substance: AMPHETAMINE ASPARTATE\AMPHETAMINE SULFATE\DEXTROAMPHETAMINE SACCHARATE\DEXTROAMPHETAMINE SULFATE
     Indication: Attention deficit hyperactivity disorder
     Dosage: OTHER QUANTITY : 1 TABLET(S);?FREQUENCY : TWICE A DAY;?
     Route: 048
     Dates: start: 20220926, end: 20220926
  2. Dietary multi-vitamin supplement from Berkley-Jensen [Concomitant]
  3. FISH OIL [Concomitant]
     Active Substance: FISH OIL
  4. ADVIL [Concomitant]
     Active Substance: IBUPROFEN

REACTIONS (7)
  - Body temperature increased [None]
  - Fatigue [None]
  - Malaise [None]
  - Asthenia [None]
  - Feeling abnormal [None]
  - Coordination abnormal [None]
  - Product substitution issue [None]

NARRATIVE: CASE EVENT DATE: 20220926
